FAERS Safety Report 21001624 (Version 2)
Quarter: 2022Q3

REPORT INFORMATION
  Report Type: Spontaneous
  Country: SI (occurrence: SI)
  Receive Date: 20220624
  Receipt Date: 20220708
  Transmission Date: 20221027
  Serious: Yes (Other)
  Sender: FDA-Public Use
  Company Number: SI-TEVA-2022-SI-2048505

PATIENT
  Age: 36 Year
  Sex: Female

DRUGS (23)
  1. AZITHROMYCIN [Suspect]
     Active Substance: AZITHROMYCIN
     Indication: Plasma cell mastitis
     Route: 065
  2. AZITHROMYCIN [Suspect]
     Active Substance: AZITHROMYCIN
     Indication: Mastitis bacterial
  3. CLINDAMYCIN [Suspect]
     Active Substance: CLINDAMYCIN
     Indication: Plasma cell mastitis
     Route: 065
  4. CLINDAMYCIN [Suspect]
     Active Substance: CLINDAMYCIN
     Indication: Mastitis bacterial
  5. CIPROFLOXACIN [Suspect]
     Active Substance: CIPROFLOXACIN
     Indication: Plasma cell mastitis
     Route: 065
  6. CIPROFLOXACIN [Suspect]
     Active Substance: CIPROFLOXACIN
     Indication: Mastitis bacterial
  7. VANCOMYCIN [Suspect]
     Active Substance: VANCOMYCIN
     Indication: Plasma cell mastitis
     Route: 065
  8. VANCOMYCIN [Suspect]
     Active Substance: VANCOMYCIN
     Indication: Mastitis bacterial
  9. TEICOPLANIN [Suspect]
     Active Substance: TEICOPLANIN
     Indication: Plasma cell mastitis
     Route: 065
  10. TEICOPLANIN [Suspect]
     Active Substance: TEICOPLANIN
     Indication: Mastitis bacterial
  11. DEXAMETHASONE [Suspect]
     Active Substance: DEXAMETHASONE
     Indication: Plasma cell mastitis
     Dosage: 8 MILLIGRAM DAILY; ORAL DEXAMETHASONE 8 MG DAILY SCHEDULED FOR 1 MONTH
     Route: 048
  12. DEXAMETHASONE [Suspect]
     Active Substance: DEXAMETHASONE
     Indication: Mastitis bacterial
  13. METHOTREXATE [Suspect]
     Active Substance: METHOTREXATE
     Indication: Plasma cell mastitis
     Dosage: SCHEDULED FOR 2.5 MONTHS, 10 MG ONCE IN A WEEK
     Route: 065
  14. METHOTREXATE [Suspect]
     Active Substance: METHOTREXATE
     Indication: Mastitis bacterial
  15. FOLIC ACID [Suspect]
     Active Substance: FOLIC ACID
     Indication: Plasma cell mastitis
     Dosage: SCHEDULED FOR 2.5 MONTHS, 5 MG
     Route: 065
  16. FOLIC ACID [Suspect]
     Active Substance: FOLIC ACID
     Indication: Mastitis bacterial
  17. DOXYCYCLINE [Suspect]
     Active Substance: DOXYCYCLINE
     Indication: Hidradenitis
     Dosage: 100 MILLIGRAM DAILY;
     Route: 048
  18. METHYLPREDNISOLONE [Suspect]
     Active Substance: METHYLPREDNISOLONE
     Indication: Pyoderma gangrenosum
     Dosage: 48 MILLIGRAM DAILY; INITIAL DOSE OF 48 MG DAILY
     Route: 048
  19. METHYLPREDNISOLONE [Suspect]
     Active Substance: METHYLPREDNISOLONE
     Dosage: SLOW TAPERING
     Route: 048
  20. BETAMETHASONE\GENTAMICIN [Suspect]
     Active Substance: BETAMETHASONE\GENTAMICIN
     Indication: Pyoderma gangrenosum
     Route: 061
  21. MYCOPHENOLATE MOFETIL [Suspect]
     Active Substance: MYCOPHENOLATE MOFETIL
     Indication: Pyoderma gangrenosum
     Dosage: 2000 MILLIGRAM DAILY;
     Route: 065
  22. PAROXETINE [Concomitant]
     Active Substance: PAROXETINE
     Indication: Panic disorder
     Route: 065
  23. ALPRAZOLAM [Concomitant]
     Active Substance: ALPRAZOLAM
     Indication: Panic disorder
     Route: 065

REACTIONS (9)
  - Rash [Unknown]
  - Cushing^s syndrome [Recovering/Resolving]
  - Adrenal insufficiency [Recovered/Resolved]
  - Panic disorder [Recovering/Resolving]
  - Hypertension [Recovering/Resolving]
  - Weight increased [Recovering/Resolving]
  - Central obesity [Recovering/Resolving]
  - Drug ineffective [Unknown]
  - Off label use [Unknown]
